FAERS Safety Report 6672267-0 (Version None)
Quarter: 2010Q2

REPORT INFORMATION
  Report Type: 
  Country: None (occurrence: None)
  Receive Date: 20100408
  Receipt Date: 20100330
  Transmission Date: 20101027
  Serious: No
  Sender: FDA-Public Use
  Company Number: US-BIOGENIDEC-2010BI011074

PATIENT
  Age: 62 Year
  Sex: Male

DRUGS (3)
  1. TYSABRI [Suspect]
     Indication: MULTIPLE SCLEROSIS
     Route: 042
     Dates: start: 20100319
  2. ALISKIREN (COMPONENT OF VALTURNA) [Concomitant]
  3. VALSARTAN (COMPONENT OF VALTURNA) [Concomitant]

REACTIONS (1)
  - BLOOD PRESSURE INCREASED [None]
